FAERS Safety Report 7997106-7 (Version None)
Quarter: 2011Q4

REPORT INFORMATION
  Report Type: 
  Country: None (occurrence: None)
  Receive Date: 20111216
  Receipt Date: 20111205
  Transmission Date: 20120403
  Serious: Yes (Other)
  Sender: FDA-Public Use
  Company Number: 2011MA017305

PATIENT
  Age: 66 Year
  Sex: Male

DRUGS (1)
  1. CARBIDOPA AND LEVODOPA [Suspect]
     Indication: PARKINSON'S DISEASE
     Dosage: 700 MG;QD;

REACTIONS (9)
  - DYSKINESIA [None]
  - GAIT DISTURBANCE [None]
  - INJURY [None]
  - GENE MUTATION [None]
  - CHOREA [None]
  - DRUG EFFECT DECREASED [None]
  - DRUG INEFFECTIVE [None]
  - MUSCLE RIGIDITY [None]
  - FALL [None]
